FAERS Safety Report 19699586 (Version 1)
Quarter: 2021Q3

REPORT INFORMATION
  Report Type: Spontaneous
  Country: US (occurrence: US)
  Receive Date: 20210813
  Receipt Date: 20210813
  Transmission Date: 20211014
  Serious: Yes (Other)
  Sender: FDA-Public Use
  Company Number: US-FRESENIUS KABI-FK202108505

PATIENT
  Sex: Male

DRUGS (4)
  1. BRENTUXIMAB VEDOTIN [Suspect]
     Active Substance: BRENTUXIMAB VEDOTIN
     Indication: HODGKIN^S DISEASE
     Dosage: 2 DOSES (1 CYCLE) OF BV+AVD  (BRENTUXIMAB VEDOTIN (ADCETRIS) DOXORUBICIN, VINBLASTINE, DACARBAZINE)
     Route: 065
  2. DACARBAZINE. [Suspect]
     Active Substance: DACARBAZINE
     Indication: HODGKIN^S DISEASE
     Dosage: 2 DOSES (1 CYCLE) OF BV+AVD  (BRENTUXIMAB VEDOTIN (ADCETRIS) DOXORUBICIN, VINBLASTINE, DACARBAZINE)
     Route: 065
  3. VINBLASTINE (MANUFACTURER UNKNOWN) [Suspect]
     Active Substance: VINBLASTINE
     Indication: HODGKIN^S DISEASE
     Dosage: 2 DOSES (1 CYCLE) OF BV+AVD  (BRENTUXIMAB VEDOTIN (ADCETRIS) DOXORUBICIN, VINBLASTINE, DACARBAZINE)
     Route: 065
  4. DOXORUBICIN [Suspect]
     Active Substance: DOXORUBICIN
     Indication: HODGKIN^S DISEASE
     Dosage: 2 DOSES (1 CYCLE) OF BV+AVD  (BRENTUXIMAB VEDOTIN (ADCETRIS) DOXORUBICIN, VINBLASTINE, DACARBAZINE)
     Route: 065

REACTIONS (3)
  - Fall [Unknown]
  - Peripheral motor neuropathy [Unknown]
  - Peroneal nerve palsy [Unknown]
